FAERS Safety Report 25195196 (Version 2)
Quarter: 2025Q2

REPORT INFORMATION
  Report Type: Spontaneous
  Country: US (occurrence: US)
  Receive Date: 20250415
  Receipt Date: 20250630
  Transmission Date: 20250717
  Serious: No
  Sender: SANOFI AVENTIS
  Company Number: US-SA-2025SA102730

PATIENT
  Age: 65 Year
  Sex: Male
  Weight: 74.95 kg

DRUGS (1)
  1. DUPIXENT [Suspect]
     Active Substance: DUPILUMAB
     Indication: Sinus polyp degeneration
     Dosage: 300 MG, QOW
     Route: 058
     Dates: start: 202503

REACTIONS (4)
  - Injection site nodule [Recovered/Resolved]
  - Injection site pain [Unknown]
  - Condition aggravated [Unknown]
  - Needle issue [Unknown]

NARRATIVE: CASE EVENT DATE: 20250301
